FAERS Safety Report 24571802 (Version 4)
Quarter: 2024Q4

REPORT INFORMATION
  Report Type: Spontaneous
  Country: AT (occurrence: AT)
  Receive Date: 20241101
  Receipt Date: 20241220
  Transmission Date: 20250114
  Serious: No
  Sender: PFIZER
  Company Number: AT-PFIZER INC-202400291645

PATIENT
  Age: 37 Year
  Sex: Female
  Weight: 71.4 kg

DRUGS (8)
  1. MEDROXYPROGESTERONE [Suspect]
     Active Substance: MEDROXYPROGESTERONE
     Indication: Contraception
     Dosage: 1 DF, EVERY 3 MONTHS
     Route: 058
  2. SERTRALINE HYDROCHLORIDE [Concomitant]
     Active Substance: SERTRALINE HYDROCHLORIDE
     Dosage: 150 MG
  3. ATARAX [Concomitant]
     Active Substance: HYDROXYZINE HYDROCHLORIDE
     Dosage: 25 MG
  4. EUTHYROX [Concomitant]
     Active Substance: LEVOTHYROXINE SODIUM
     Dosage: 100 UG
  5. COLCHICINE [Concomitant]
     Active Substance: COLCHICINE
     Dosage: 1 MG
  6. TOCILIZUMAB [Concomitant]
     Active Substance: TOCILIZUMAB
     Dosage: 1 DF, MONTHLY
  7. PROLIA [Concomitant]
     Active Substance: DENOSUMAB
     Dosage: 60 MG, CYCLIC (BIANNUAL)
  8. CALCIDURAN [ASCORBIC ACID;CALCIUM PHOSPHATE DIBASIC;COLECALCIFEROL] [Concomitant]
     Dosage: 500/800 IE

REACTIONS (1)
  - Syringe issue [Unknown]
